FAERS Safety Report 18946515 (Version 2)
Quarter: 2021Q2

REPORT INFORMATION
  Report Type: Spontaneous
  Country: TR (occurrence: TR)
  Receive Date: 20210226
  Receipt Date: 20210429
  Transmission Date: 20210717
  Serious: Yes (Other)
  Sender: FDA-Public Use
  Company Number: TR-BIOGEN-2021BI00982911

PATIENT
  Age: 36 Year
  Sex: Female
  Weight: 40 kg

DRUGS (1)
  1. TYSABRI [Suspect]
     Active Substance: NATALIZUMAB
     Indication: MULTIPLE SCLEROSIS
     Dosage: INFUSED OVER 1 HOUR
     Route: 042
     Dates: start: 202008, end: 202011

REACTIONS (2)
  - Stomatococcal infection [Unknown]
  - Central nervous system fungal infection [Unknown]

NARRATIVE: CASE EVENT DATE: 20210108
